FAERS Safety Report 10056753 (Version 2)
Quarter: 2014Q3

REPORT INFORMATION
  Report Type: Spontaneous
  Country: JP (occurrence: JP)
  Receive Date: 20140403
  Receipt Date: 20140702
  Transmission Date: 20150326
  Serious: Yes (Hospitalization, Other)
  Sender: FDA-Public Use
  Company Number: PHHY2014JP039701

PATIENT
  Age: 5 Year
  Sex: Female

DRUGS (3)
  1. CARBOPLATIN. [Suspect]
     Active Substance: CARBOPLATIN
     Indication: STEM CELL TRANSPLANT
  2. MELPHALAN [Suspect]
     Active Substance: MELPHALAN
     Indication: STEM CELL TRANSPLANT
  3. ETOPOSIDE SANDOZ [Suspect]
     Active Substance: ETOPOSIDE
     Indication: STEM CELL TRANSPLANT

REACTIONS (6)
  - Pulmonary artery wall hypertrophy [Recovering/Resolving]
  - Pulmonary hypertension [Recovering/Resolving]
  - Pulmonary thrombosis [Recovering/Resolving]
  - Tachycardia [Recovering/Resolving]
  - Pulmonary fibrosis [Recovering/Resolving]
  - Hypoxia [Recovering/Resolving]
